FAERS Safety Report 9978107 (Version 1)
Quarter: 2014Q1

REPORT INFORMATION
  Report Type: Spontaneous
  Country: US (occurrence: US)
  Receive Date: 20140306
  Receipt Date: 20140306
  Transmission Date: 20141002
  Serious: Yes (Other)
  Sender: FDA-Public Use
  Company Number: US-PFIZER INC-2014065029

PATIENT
  Age: 62 Year
  Sex: Male

DRUGS (1)
  1. SUTENT [Suspect]
     Indication: NEOPLASM MALIGNANT
     Dosage: 50 MG, CYCLIC [4 WKS ON, 2 WKS OFF]
     Route: 048
     Dates: start: 20120511, end: 20140303

REACTIONS (4)
  - Rash [Unknown]
  - Diarrhoea [Unknown]
  - Disease progression [Unknown]
  - Neoplasm malignant [Unknown]
